FAERS Safety Report 23667833 (Version 1)
Quarter: 2024Q1

REPORT INFORMATION
  Report Type: Spontaneous
  Country: AE (occurrence: None)
  Receive Date: 20240325
  Receipt Date: 20240325
  Transmission Date: 20240410
  Serious: Yes (Death, Hospitalization)
  Sender: FDA-Public Use
  Company Number: AE-ROCHE-3530715

PATIENT
  Sex: Female

DRUGS (1)
  1. RITUXIMAB [Suspect]
     Active Substance: RITUXIMAB
     Indication: Neuromyelitis optica spectrum disorder
     Route: 065

REACTIONS (5)
  - Blood immunoglobulin G decreased [Fatal]
  - Blood immunoglobulin M decreased [Fatal]
  - Sepsis [Fatal]
  - Urinary tract infection [Unknown]
  - Off label use [Unknown]
